FAERS Safety Report 7573983-9 (Version None)
Quarter: 2011Q2

REPORT INFORMATION
  Report Type: 
  Country: None (occurrence: None)
  Receive Date: 20110627
  Receipt Date: 20110615
  Transmission Date: 20111010
  Serious: Yes (Other)
  Sender: FDA-Public Use
  Company Number: US-JNJFOC-20110608303

PATIENT
  Age: 63 Year
  Sex: Female
  Weight: 68.95 kg

DRUGS (19)
  1. TRIAMTERENE [Concomitant]
     Indication: HYPERTENSION
     Route: 065
  2. RISPERDAL [Concomitant]
     Indication: MENTAL DISORDER
     Route: 065
  3. VYTORIN [Concomitant]
     Indication: BLOOD CHOLESTEROL INCREASED
     Route: 065
  4. DIPHENHYDRAMINE HCL [Suspect]
     Indication: PRODUCT USED FOR UNKNOWN INDICATION
     Dosage: TWO TABLETS
     Route: 048
     Dates: start: 20110601, end: 20110601
  5. VITAMIN B-12 [Concomitant]
     Indication: NUTRITIONAL SUPPORT
     Route: 065
  6. DEPO-ESTRADIOL [Concomitant]
     Indication: MENOPAUSE
     Route: 065
  7. LISINOPRIL [Concomitant]
     Indication: HYPERTENSION
     Route: 065
  8. MULTI-VITAMINS [Concomitant]
     Indication: NUTRITIONAL SUPPORT
     Route: 065
  9. ENBREL [Concomitant]
     Indication: RHEUMATOID ARTHRITIS
     Route: 065
  10. CALCIUM AND VITAMIN D [Concomitant]
     Indication: NUTRITIONAL SUPPORT
     Route: 065
  11. BENZOIC ACID/SALICYLIC ACID [Concomitant]
     Route: 061
  12. DEPO-ESTRADIOL [Concomitant]
     Indication: HORMONE REPLACEMENT THERAPY
     Route: 065
  13. VESICARE [Concomitant]
     Indication: HYPERTONIC BLADDER
     Route: 065
  14. DIPHENHYDRAMINE HCL [Suspect]
     Route: 048
  15. LEVOTHYROXINE SODIUM [Concomitant]
     Indication: HYPOTHYROIDISM
     Route: 065
  16. FOLIC ACID [Concomitant]
     Indication: VITAMIN SUPPLEMENTATION
     Route: 065
  17. GABAPENTIN [Concomitant]
     Indication: NEURALGIA
     Route: 065
  18. PANTOPRAZOLE [Concomitant]
     Indication: GASTROOESOPHAGEAL REFLUX DISEASE
     Route: 065
  19. CITALOPRAM HYDROBROMIDE [Concomitant]
     Indication: MENTAL DISORDER
     Route: 065

REACTIONS (1)
  - CONVULSION [None]
